FAERS Safety Report 10511969 (Version 4)
Quarter: 2014Q4

REPORT INFORMATION
  Report Type: Spontaneous
  Country: JP (occurrence: JP)
  Receive Date: 20141010
  Receipt Date: 20141204
  Transmission Date: 20150528
  Serious: Yes (Hospitalization)
  Sender: FDA-Public Use
  Company Number: JP-PFIZER INC-2014272999

PATIENT
  Age: 78 Year
  Sex: Female

DRUGS (13)
  1. MUCOSOLVAN [Concomitant]
     Active Substance: AMBROXOL\CLENBUTEROL
  2. ZYVOX [Suspect]
     Active Substance: LINEZOLID
     Indication: STAPHYLOCOCCAL INFECTION
     Dosage: 1200 MG, DAILY
     Route: 042
     Dates: start: 20140703, end: 20140722
  3. SULPIRIDE [Concomitant]
     Active Substance: SULPIRIDE
  4. SAIKOKEISHITOU [Concomitant]
  5. ASTOMIN [Concomitant]
     Active Substance: DIMEMORFAN
  6. PRIMPERAN [Concomitant]
     Active Substance: METOCLOPRAMIDE HYDROCHLORIDE
  7. HYALEIN [Concomitant]
     Active Substance: HYALURONATE SODIUM
  8. ZYVOX [Suspect]
     Active Substance: LINEZOLID
     Indication: STAPHYLOCOCCAL INFECTION
     Dosage: 600 MG, 2X/DAY
     Route: 048
     Dates: start: 20140812, end: 20140902
  9. SHOUSEIRYUUTOU [Concomitant]
  10. MINEBASE [Concomitant]
  11. MUCODYNE [Concomitant]
     Active Substance: CARBOCYSTEINE
  12. BLOPRESS [Concomitant]
     Active Substance: CANDESARTAN CILEXETIL
  13. TRANSAMIN [Concomitant]
     Active Substance: TRANEXAMIC ACID

REACTIONS (4)
  - Acute kidney injury [Recovered/Resolved]
  - Lactic acidosis [Recovered/Resolved]
  - Pancytopenia [Recovered/Resolved]
  - Thrombocytopenia [Recovered/Resolved]

NARRATIVE: CASE EVENT DATE: 20140902
